FAERS Safety Report 7402719 (Version 2)
Quarter: 2014Q1

REPORT INFORMATION
  Report Type: Spontaneous
  Country: US (occurrence: US)
  Receive Date: 20100528
  Receipt Date: 20140130
  Transmission Date: 20141002
  Serious: Yes (Hospitalization)
  Sender: FDA-Public Use
  Company Number: US-JNJFOC-20100509437

PATIENT
  Sex: Female
  Weight: 106.14 kg

DRUGS (12)
  1. DURAGESIC [Suspect]
     Indication: INTERVERTEBRAL DISC DEGENERATION
     Route: 062
     Dates: start: 2004, end: 2009
  2. UNSPECIFIED FENTANYL PATCH [Suspect]
     Indication: INTERVERTEBRAL DISC DEGENERATION
     Route: 062
     Dates: start: 2009, end: 200911
  3. DURAGESIC [Suspect]
     Indication: INTERVERTEBRAL DISC DEGENERATION
     Route: 062
     Dates: start: 200911
  4. CARISOPRODOL [Concomitant]
     Indication: MUSCLE RELAXANT THERAPY
     Route: 048
     Dates: start: 1985
  5. GLIMEPIRIDE [Concomitant]
     Indication: DIABETES MELLITUS
     Route: 048
     Dates: start: 2000
  6. PROMETHAZINE [Concomitant]
     Indication: NAUSEA
     Dosage: AS NEEDED DAILY
     Route: 048
     Dates: start: 1976
  7. ASPIRIN [Concomitant]
     Indication: ANTICOAGULANT THERAPY
     Route: 048
     Dates: start: 2005
  8. HYZAAR [Concomitant]
     Indication: HYPERTENSION
     Dosage: 50/12.5 MG
     Route: 048
     Dates: start: 2000
  9. NEXIUM [Concomitant]
     Indication: GASTROOESOPHAGEAL REFLUX DISEASE
     Route: 048
     Dates: start: 2005
  10. EFFEXOR-XL [Concomitant]
     Indication: PANIC ATTACK
     Route: 048
     Dates: start: 2000
  11. CLONAZEPAM [Concomitant]
     Indication: PANIC ATTACK
     Route: 048
     Dates: start: 2000
  12. OXYCODONE [Concomitant]
     Indication: BREAKTHROUGH PAIN
     Dosage: 10/325 MG, 1 EVERY 4-6 HOURS AS NEEDED
     Route: 048
     Dates: start: 2004

REACTIONS (9)
  - Dehydration [Recovered/Resolved]
  - Intervertebral disc protrusion [Not Recovered/Not Resolved]
  - Ligament injury [Not Recovered/Not Resolved]
  - Ligament rupture [Recovered/Resolved]
  - Fall [Recovered/Resolved]
  - Synovial cyst [Not Recovered/Not Resolved]
  - Fluid retention [Not Recovered/Not Resolved]
  - Therapeutic response decreased [Recovered/Resolved]
  - Product quality issue [Unknown]
